FAERS Safety Report 11811046 (Version 5)
Quarter: 2016Q1

REPORT INFORMATION
  Report Type: Spontaneous
  Country: AU (occurrence: AU)
  Receive Date: 20151208
  Receipt Date: 20160316
  Transmission Date: 20160525
  Serious: Yes (Hospitalization, Other)
  Sender: FDA-Public Use
  Company Number: AU-AMGEN-AUSSP2015127352

PATIENT
  Age: 79 Year
  Sex: Female
  Weight: 163 kg

DRUGS (22)
  1. ESOMEPRAZOLE [Concomitant]
     Active Substance: ESOMEPRAZOLE
     Dosage: 40 MG, QD
  2. FRUSEMIDE                          /00032601/ [Concomitant]
     Active Substance: FUROSEMIDE
     Indication: OEDEMA
     Dosage: 40 MG, UNK
  3. ADVANTEC [Concomitant]
     Dosage: UNK UNK, QD
  4. PROLIA [Suspect]
     Active Substance: DENOSUMAB
     Indication: OSTEOPOROSIS POSTMENOPAUSAL
     Dosage: 60 MG, Q6MO
     Route: 058
     Dates: start: 201508
  5. ASPIRIN                            /00002701/ [Concomitant]
     Active Substance: ASPIRIN
     Dosage: 100 MG, QD
  6. PARACETAMOL [Concomitant]
     Active Substance: ACETAMINOPHEN
     Dosage: 1 G, TID
  7. CALCIUM CARBONATE. [Concomitant]
     Active Substance: CALCIUM CARBONATE
     Dosage: 600 MG, QD
  8. CHOLECALCIFEROL [Concomitant]
     Active Substance: CHOLECALCIFEROL
     Dosage: 25 MUG, QD
  9. MAGNESIUM [Concomitant]
     Active Substance: MAGNESIUM
     Dosage: UNK, QD
     Route: 048
  10. SERETIDE [Concomitant]
     Active Substance: FLUTICASONE FUROATE\SALMETEROL XINAFOATE
     Dosage: 500 UNK, UNK
  11. SIMVASTATIN. [Concomitant]
     Active Substance: SIMVASTATIN
     Dosage: 40 MG, QD
  12. CALTRATE                           /00944201/ [Concomitant]
  13. BUPRENORPHINE. [Concomitant]
     Active Substance: BUPRENORPHINE
     Dosage: 10 MUG, QWK
  14. CEPHALEXIN                         /00145501/ [Concomitant]
     Active Substance: CEPHALEXIN
     Dosage: 500 MG, TID
     Dates: start: 201506
  15. NOVOPEN                            /00000903/ [Concomitant]
     Dosage: 10 MG, QWK
  16. IRBESARTAN. [Concomitant]
     Active Substance: IRBESARTAN
     Dosage: 75 MG, UNK
  17. FLUCLOXACILLIN [Concomitant]
     Active Substance: FLUCLOXACILLIN
     Indication: CELLULITIS
     Dosage: 500 MG, QID
  18. BETAMETHASONE DIPROPRIONATE [Concomitant]
     Indication: ECZEMA
     Dosage: 0.05 % (OINTMENT APPLIED ON TOP OF BOTH LEGS), QD
  19. CLOTRIMAZOLE. [Concomitant]
     Active Substance: CLOTRIMAZOLE
     Indication: CANDIDA INFECTION
     Dosage: 1 %, UNK
  20. DERMEZE [Concomitant]
     Dosage: UNK UNK, QD
  21. OSTEOKIT [Concomitant]
     Dosage: UNK UNK, BID
     Route: 048
  22. METHYLPREDNISOLONE. [Concomitant]
     Active Substance: METHYLPREDNISOLONE

REACTIONS (16)
  - Induration [Unknown]
  - Cellulitis [Not Recovered/Not Resolved]
  - Myiasis [Unknown]
  - Adverse event [Unknown]
  - Lymphoedema [Unknown]
  - Erythema [Unknown]
  - Pulmonary hypertension [Unknown]
  - Skin candida [Unknown]
  - Oxygen saturation abnormal [Unknown]
  - Oedema [Unknown]
  - Diabetes mellitus [Unknown]
  - Gastrooesophageal reflux disease [Recovering/Resolving]
  - Cardiac failure [Unknown]
  - Peripheral swelling [Not Recovered/Not Resolved]
  - Mucous membrane disorder [Unknown]
  - Tongue dry [Unknown]

NARRATIVE: CASE EVENT DATE: 20151129
